FAERS Safety Report 10083347 (Version 2)
Quarter: 2014Q2

REPORT INFORMATION
  Report Type: Spontaneous
  Country: US (occurrence: US)
  Receive Date: 20140417
  Receipt Date: 20140417
  Transmission Date: 20141212
  Serious: Yes (Death)
  Sender: FDA-Public Use
  Company Number: US-AMGEN-USASP2014023603

PATIENT
  Age: 83 Year
  Sex: Female
  Weight: 58.05 kg

DRUGS (30)
  1. PROLIA [Suspect]
     Indication: SENILE OSTEOPOROSIS
     Dosage: 60 MG/ML, Q6MO
     Route: 065
     Dates: start: 20131125, end: 20131125
  2. CALCIUM [Concomitant]
     Dosage: UNK
  3. VITAMIN D                          /00107901/ [Concomitant]
     Dosage: UNK
  4. CALCIUM CARBONATE W/VITAMIN D      /01204201/ [Concomitant]
     Dosage: 600/400 MG, BID
     Route: 048
     Dates: start: 20131125
  5. TRAMADOL [Concomitant]
     Dosage: 50 MG, BID
     Route: 048
     Dates: start: 20131125
  6. FOLIC ACID [Concomitant]
     Dosage: 1 MG, QD
     Route: 048
     Dates: start: 20131125
  7. METHOTREXATE [Concomitant]
     Dosage: 2.5 MG, QWK
     Route: 048
     Dates: start: 20131125
  8. WARFARIN SODIUM [Concomitant]
     Dosage: 5 MG, UNK
     Route: 048
  9. LACRISERT [Concomitant]
     Dosage: 5 MG, UNK
     Route: 047
  10. POTASSIUM [Concomitant]
     Route: 048
  11. PANTOPRAZOLE SODIUM [Concomitant]
     Dosage: 40 MG, QD
     Route: 048
  12. OLANZAPINE [Concomitant]
     Dosage: 2.5 MG, QD
     Route: 048
  13. MIRTAZAPINE [Concomitant]
     Dosage: 7.5 MG, UNK
     Route: 048
  14. METOCLOPRAMIDE [Concomitant]
     Dosage: 10 MG, TID
     Route: 048
  15. FLORA Q                            /00079701/ [Concomitant]
     Route: 048
  16. DIGOXIN [Concomitant]
     Route: 048
  17. CYANOCOBALAMIN [Concomitant]
     Dosage: 1000 MUG, UNK
  18. LIPITOR [Concomitant]
     Dosage: 10 MG, UNK
     Route: 048
  19. AMLODIPINE BESYLATE [Concomitant]
     Dosage: 5 MG, UNK
     Route: 048
  20. VITAMIN C                          /00008001/ [Concomitant]
     Route: 048
  21. ADVAIR [Concomitant]
     Dosage: 250 MUG, BID
  22. ATENOLOL [Concomitant]
     Dosage: 100 MG, UNK
     Route: 048
  23. IRON [Concomitant]
     Dosage: 325 MG, UNK
     Route: 048
  24. CILOSTAZOL [Concomitant]
     Dosage: 100 MG, BID
     Route: 048
  25. LOVASTATIN [Concomitant]
     Dosage: 40 MG, QD
     Route: 048
  26. LEVOTHYROXINE SODIUM [Concomitant]
     Dosage: 100 MUG, UNK
     Route: 048
  27. OCUVITE                            /01053801/ [Concomitant]
     Route: 048
  28. CLONIDINE [Concomitant]
     Dosage: 0.2 MG, QWK
     Route: 062
  29. ACETAMINOPHEN [Concomitant]
     Dosage: 325 MG, AS NECESSARY
     Route: 048
  30. SIMETHICONE [Concomitant]
     Dosage: 80 MG, AS NECESSARY
     Route: 048

REACTIONS (3)
  - Acute respiratory failure [Fatal]
  - Septic shock [Fatal]
  - Atrial fibrillation [Fatal]
